FAERS Safety Report 7665234-1 (Version None)
Quarter: 2011Q3

REPORT INFORMATION
  Report Type: 
  Country: None (occurrence: None)
  Receive Date: 20110806
  Receipt Date: 20110311
  Transmission Date: 20111222
  Serious: No
  Sender: FDA-Public Use
  Company Number: US-ABBOTT-11P-163-0711187-00

PATIENT
  Age: 73 Year
  Sex: Male

DRUGS (5)
  1. NIASPAN [Suspect]
  2. UNKNOWN OTHER MEDICATIONS [Concomitant]
     Indication: PRODUCT USED FOR UNKNOWN INDICATION
  3. NIASPAN [Suspect]
     Indication: BLOOD CHOLESTEROL INCREASED
  4. UNKNOWN CHOLESTEROL MEDICATION [Suspect]
     Indication: BLOOD CHOLESTEROL INCREASED
  5. UNKNOWN CHOLESTEROL MEDICATION [Suspect]

REACTIONS (3)
  - EYE DISORDER [None]
  - HEADACHE [None]
  - NECK PAIN [None]
